FAERS Safety Report 20557636 (Version 2)
Quarter: 2022Q1

REPORT INFORMATION
  Report Type: Spontaneous
  Country: GB (occurrence: GB)
  Receive Date: 20220307
  Receipt Date: 20220323
  Transmission Date: 20220424
  Serious: Yes (Other)
  Sender: FDA-Public Use
  Company Number: GB-002147023-NVSC2022GB049284

PATIENT
  Sex: Male

DRUGS (1)
  1. OMALIZUMAB [Suspect]
     Active Substance: OMALIZUMAB
     Indication: Product used for unknown indication
     Route: 065

REACTIONS (1)
  - Deep vein thrombosis [Unknown]
